FAERS Safety Report 8449496-9 (Version None)
Quarter: 2012Q2

REPORT INFORMATION
  Report Type: 
  Country: None (occurrence: None)
  Receive Date: 20120619
  Receipt Date: 20120614
  Transmission Date: 20120825
  Serious: Yes (Death, Hospitalization)
  Sender: FDA-Public Use
  Company Number: US-MERCK-1205USA05201

PATIENT
  Age: 77 Year
  Sex: Male

DRUGS (7)
  1. PROSCAR [Concomitant]
     Route: 048
     Dates: start: 20101216
  2. FOLIC ACID [Concomitant]
     Route: 048
     Dates: start: 20101216
  3. DECADRON [Suspect]
     Indication: NEUROPATHY PERIPHERAL
     Route: 048
  4. POTASSIUM CHLORIDE [Concomitant]
     Route: 048
     Dates: start: 20110408
  5. FERROUS SULFATE [Concomitant]
     Route: 048
     Dates: start: 20101216
  6. PROCHLORPERAZINE MALEATE [Concomitant]
     Indication: NAUSEA
     Route: 048
     Dates: start: 20110330
  7. PROCHLORPERAZINE MALEATE [Concomitant]
     Indication: VOMITING
     Route: 048
     Dates: start: 20110330

REACTIONS (9)
  - WHITE BLOOD CELL COUNT DECREASED [None]
  - FALL [None]
  - PYREXIA [None]
  - PLATELET COUNT DECREASED [None]
  - ASPERGILLOSIS [None]
  - DELIRIUM [None]
  - NON-HODGKIN'S LYMPHOMA [None]
  - NEUTROPHIL COUNT DECREASED [None]
  - WEIGHT DECREASED [None]
